FAERS Safety Report 7522798-6 (Version None)
Quarter: 2011Q2

REPORT INFORMATION
  Report Type: 
  Country: None (occurrence: None)
  Receive Date: 20110603
  Receipt Date: 20110527
  Transmission Date: 20111010
  Serious: Yes (Hospitalization, Other)
  Sender: FDA-Public Use
  Company Number: JP-PFIZER INC-2011084760

PATIENT
  Age: 62 Year
  Sex: Female
  Weight: 50 kg

DRUGS (5)
  1. AMLODIPINE [Concomitant]
     Dosage: 2.5 MG, 1X/DAY
     Route: 048
  2. LOPERAMIDE HCL [Concomitant]
     Dosage: 1 MG, 1X/DAY
     Route: 048
     Dates: start: 20040521
  3. SUTENT [Suspect]
     Indication: RENAL CELL CARCINOMA
     Dosage: 25 MG, 1X/DAY
     Route: 048
     Dates: start: 20110328, end: 20110410
  4. TENORMIN [Concomitant]
     Dosage: 25 MG, 1X/DAY
     Route: 048
  5. CANDESARTAN CILEXETIL [Concomitant]
     Dosage: 2 MG, 1X/DAY
     Route: 048

REACTIONS (3)
  - LOSS OF CONSCIOUSNESS [None]
  - LIVER DISORDER [None]
  - CONVULSION [None]
